FAERS Safety Report 9027144 (Version 2)
Quarter: 2013Q1

REPORT INFORMATION
  Report Type: Spontaneous
  Country: FR (occurrence: FR)
  Receive Date: 20130123
  Receipt Date: 20130226
  Transmission Date: 20140127
  Serious: Yes (Hospitalization, Disabling)
  Sender: FDA-Public Use
  Company Number: FR-GLAXOSMITHKLINE-B0859849A

PATIENT
  Age: 65 None
  Sex: Male
  Weight: 64 kg

DRUGS (3)
  1. ARZERRA [Suspect]
     Indication: CHRONIC LYMPHOCYTIC LEUKAEMIA
     Dosage: 2G WEEKLY
     Route: 042
     Dates: start: 201206
  2. VFEND [Concomitant]
     Indication: BRONCHOPULMONARY ASPERGILLOSIS
     Route: 048
     Dates: start: 201201
  3. CORTICOSTEROIDS [Concomitant]
     Indication: HYPERSENSITIVITY
     Dates: start: 201206

REACTIONS (6)
  - Diarrhoea [Not Recovered/Not Resolved]
  - Malabsorption [Not Recovered/Not Resolved]
  - Colitis [Not Recovered/Not Resolved]
  - Weight decreased [Not Recovered/Not Resolved]
  - General physical health deterioration [Recovering/Resolving]
  - Hypersensitivity [Recovered/Resolved]
